FAERS Safety Report 7905436-X (Version None)
Quarter: 2011Q4

REPORT INFORMATION
  Report Type: 
  Country: None (occurrence: None)
  Receive Date: 20111109
  Receipt Date: 20111027
  Transmission Date: 20120403
  Serious: Yes (Congenital Anomaly)
  Sender: FDA-Public Use
  Company Number: GB-MYLANLABS-2011S1021450

PATIENT
  Sex: Female
  Weight: 1.87 kg

DRUGS (7)
  1. CHLORPROMAZINE [Suspect]
     Route: 064
     Dates: start: 20110501
  2. CYCLIZINE [Concomitant]
     Indication: PRODUCT USED FOR UNKNOWN INDICATION
  3. FLUOXETINE HCL [Suspect]
     Route: 064
     Dates: start: 20110117, end: 20110401
  4. FLUOXETINE HCL [Suspect]
     Route: 064
     Dates: start: 20110401
  5. CHLORPROMAZINE [Suspect]
     Route: 064
     Dates: start: 20101005, end: 20110501
  6. OMEPRAZOLE [Concomitant]
     Indication: PRODUCT USED FOR UNKNOWN INDICATION
  7. PAROXETINE HCL [Concomitant]
     Indication: PRODUCT USED FOR UNKNOWN INDICATION

REACTIONS (2)
  - MATERNAL EXPOSURE DURING PREGNANCY [None]
  - CLEFT PALATE [None]
